FAERS Safety Report 6158512-9 (Version None)
Quarter: 2009Q2

REPORT INFORMATION
  Report Type: 
  Country: None (occurrence: None)
  Receive Date: 20090417
  Receipt Date: 20090408
  Transmission Date: 20091009
  Serious: Yes (Other)
  Sender: FDA-Public Use
  Company Number: PHHY2009CA13634

PATIENT

DRUGS (1)
  1. FEMARA [Suspect]

REACTIONS (2)
  - TENOSYNOVITIS STENOSANS [None]
  - UNEVALUABLE EVENT [None]
